FAERS Safety Report 13476789 (Version 1)
Quarter: 2017Q2

REPORT INFORMATION
  Report Type: Spontaneous
  Country: US (occurrence: US)
  Receive Date: 20170425
  Receipt Date: 20170425
  Transmission Date: 20170830
  Serious: Yes (Other)
  Sender: FDA-Public Use
  Company Number: US-GLAXOSMITHKLINE-US2017GSK058662

PATIENT
  Sex: Female

DRUGS (1)
  1. LOVAZA [Suspect]
     Active Substance: OMEGA-3-ACID ETHYL ESTERS
     Indication: BLOOD TRIGLYCERIDES INCREASED
     Dosage: 4 G, QD

REACTIONS (5)
  - Incorrect product storage [Unknown]
  - Pancreatic steatosis [Unknown]
  - Systemic lupus erythematosus [Unknown]
  - Pancreatic carcinoma [Unknown]
  - Abdominal discomfort [Unknown]
